FAERS Safety Report 19979111 (Version 2)
Quarter: 2021Q4

REPORT INFORMATION
  Report Type: Spontaneous
  Country: JP (occurrence: JP)
  Receive Date: 20211021
  Receipt Date: 20211101
  Transmission Date: 20220303
  Serious: Yes (Other)
  Sender: FDA-Public Use
  Company Number: JP-NOVARTISPH-NVSJ2021JP016895

PATIENT
  Age: 75 Year
  Sex: Male

DRUGS (4)
  1. BEOVU [Suspect]
     Active Substance: BROLUCIZUMAB-DBLL
     Indication: Choroidal neovascularisation
     Dosage: 6 MG
     Route: 031
  2. BEOVU [Suspect]
     Active Substance: BROLUCIZUMAB-DBLL
     Indication: Age-related macular degeneration
  3. AFLIBERCEPT [Concomitant]
     Active Substance: AFLIBERCEPT
     Indication: Choroidal neovascularisation
     Dosage: UNK
     Route: 065
  4. AFLIBERCEPT [Concomitant]
     Active Substance: AFLIBERCEPT
     Dosage: UNK UNK, PRN
     Route: 065

REACTIONS (5)
  - Retinal vascular occlusion [Unknown]
  - Visual acuity reduced transiently [Recovered/Resolved]
  - Age-related macular degeneration [Unknown]
  - Disease recurrence [Unknown]
  - Eye inflammation [Recovering/Resolving]
